FAERS Safety Report 6543190-7 (Version None)
Quarter: 2010Q1

REPORT INFORMATION
  Report Type: 
  Country: None (occurrence: None)
  Receive Date: 20100120
  Receipt Date: 20100113
  Transmission Date: 20100710
  Serious: Yes (Hospitalization, Other)
  Sender: FDA-Public Use
  Company Number: US-PFIZER INC-2010005676

PATIENT
  Sex: Female
  Weight: 54.4 kg

DRUGS (3)
  1. DEPO-PROVERA [Suspect]
     Indication: CONTRACEPTION
     Dosage: UNK
     Route: 030
  2. NUVARING [Suspect]
     Indication: CONTRACEPTION
     Route: 067
     Dates: start: 20091001, end: 20091101
  3. NUVARING [Suspect]
     Indication: ACNE

REACTIONS (11)
  - ABDOMINAL DISTENSION [None]
  - ABDOMINAL PAIN [None]
  - ACNE [None]
  - BLOOD PRESSURE INCREASED [None]
  - ECLAMPSIA [None]
  - GALLBLADDER PAIN [None]
  - HORMONE LEVEL ABNORMAL [None]
  - KIDNEY INFECTION [None]
  - UTERINE INFECTION [None]
  - UTERINE NEOPLASM [None]
  - WEIGHT INCREASED [None]
